FAERS Safety Report 5378869-6 (Version None)
Quarter: 2007Q3

REPORT INFORMATION
  Report Type: 
  Country: None (occurrence: None)
  Receive Date: 20070705
  Receipt Date: 20070626
  Transmission Date: 20080115
  Serious: Yes (Other)
  Sender: FDA-Public Use
  Company Number: AU-AMGEN-US231583

PATIENT
  Sex: Male

DRUGS (2)
  1. CINACALCET [Suspect]
     Indication: HYPERPARATHYROIDISM SECONDARY
     Route: 048
     Dates: start: 20070112, end: 20070530
  2. ARANESP [Concomitant]
     Indication: DIALYSIS
     Route: 042
     Dates: start: 20061013

REACTIONS (1)
  - SKIN LESION [None]
